FAERS Safety Report 7093486-8 (Version None)
Quarter: 2010Q4

REPORT INFORMATION
  Report Type: 
  Country: None (occurrence: None)
  Receive Date: 20101110
  Receipt Date: 20090806
  Transmission Date: 20110411
  Serious: No
  Sender: FDA-Public Use
  Company Number: US-KINGPHARMUSA00001-K200900938

PATIENT
  Sex: Male

DRUGS (1)
  1. CORTISPORIN [Suspect]
     Route: 061

REACTIONS (1)
  - APPLICATION SITE REACTION [None]
